FAERS Safety Report 7267766-7 (Version None)
Quarter: 2011Q1

REPORT INFORMATION
  Report Type: 
  Country: None (occurrence: None)
  Receive Date: 20110201
  Receipt Date: 20110128
  Transmission Date: 20110831
  Serious: Yes (Hospitalization)
  Sender: FDA-Public Use
  Company Number: A0868323A

PATIENT
  Age: 69 Year
  Sex: Male

DRUGS (2)
  1. AVANDIA [Suspect]
     Dosage: 4MG PER DAY
     Route: 048
     Dates: start: 20060401, end: 20060901
  2. AVANDAMET [Suspect]
     Route: 048
     Dates: start: 20060901, end: 20081201

REACTIONS (8)
  - INCONTINENCE [None]
  - MENTAL DISORDER [None]
  - ASTHENIA [None]
  - CARDIAC FAILURE CONGESTIVE [None]
  - AMNESIA [None]
  - MUSCLE DISORDER [None]
  - DIARRHOEA [None]
  - DIZZINESS [None]
